FAERS Safety Report 5419016-1 (Version None)
Quarter: 2007Q3

REPORT INFORMATION
  Report Type: 
  Country: None (occurrence: None)
  Receive Date: 20070817
  Receipt Date: 20070809
  Transmission Date: 20080115
  Serious: Yes (Other)
  Sender: FDA-Public Use
  Company Number: US-PFIZER INC-2007067107

PATIENT
  Sex: Female
  Weight: 52.2 kg

DRUGS (1)
  1. GEODON [Suspect]
     Indication: ILL-DEFINED DISORDER
     Route: 048

REACTIONS (5)
  - AGGRESSION [None]
  - DEPRESSION [None]
  - EATING DISORDER [None]
  - HOSTILITY [None]
  - WEIGHT INCREASED [None]
